FAERS Safety Report 22103510 (Version 2)
Quarter: 2023Q1

REPORT INFORMATION
  Report Type: Spontaneous
  Country: US (occurrence: US)
  Receive Date: 20230316
  Receipt Date: 20230320
  Transmission Date: 20230418
  Serious: No
  Sender: FDA-Public Use
  Company Number: US-PFIZER INC-202300108870

PATIENT
  Age: 65 Year
  Sex: Female

DRUGS (25)
  1. PAXLOVID [Suspect]
     Active Substance: NIRMATRELVIR\RITONAVIR
     Indication: COVID-19 treatment
     Dosage: UNK
     Dates: start: 20230302, end: 20230306
  2. OLMESARTAN MEDOXOMIL [Concomitant]
     Active Substance: OLMESARTAN MEDOXOMIL
     Dosage: 40 MG
  3. ATORVASTATIN [Concomitant]
     Active Substance: ATORVASTATIN
     Dosage: 20 MG
     Dates: end: 20230302
  4. MONTELUKAST SODIUM [Concomitant]
     Active Substance: MONTELUKAST SODIUM
     Dosage: 10 MG
  5. METFORMIN HYDROCHLORIDE [Concomitant]
     Active Substance: METFORMIN HYDROCHLORIDE
     Dosage: 500 MG
  6. AZELAIC ACID [Concomitant]
     Active Substance: AZELAIC ACID
     Dosage: 15 %
     Route: 061
  7. NORITATE [Concomitant]
     Active Substance: METRONIDAZOLE
     Dosage: 1 %
     Route: 061
  8. LACTOBACILLUS ACIDOPHILUS [Concomitant]
     Active Substance: LACTOBACILLUS ACIDOPHILUS
  9. MINERALS\VITAMINS [Concomitant]
     Active Substance: MINERALS\VITAMINS
  10. ASPIRIN [Concomitant]
     Active Substance: ASPIRIN
     Dosage: 81 MG
  11. VITAMIN D NOS [Concomitant]
     Active Substance: VITAMIN D NOS
     Dosage: 25MCG 1000IU
  12. FLUTICASONE PROPIONATE [Concomitant]
     Active Substance: FLUTICASONE PROPIONATE
     Dosage: 50 UG
  13. FISH OIL [Concomitant]
     Active Substance: FISH OIL
     Dosage: 1400 MG
  14. COLACE [Concomitant]
     Active Substance: DOCUSATE SODIUM
  15. MIRALAX [Concomitant]
     Active Substance: POLYETHYLENE GLYCOL 3350
  16. AIRBORNE [Concomitant]
     Active Substance: HERBALS\MINERALS\VITAMINS
     Dosage: GUMMIES
  17. SYSTANE COMPLETE [Concomitant]
     Active Substance: PROPYLENE GLYCOL
  18. LETROZOLE [Concomitant]
     Active Substance: LETROZOLE
     Dosage: 2.5 MG
  19. BIOTIN [Concomitant]
     Active Substance: BIOTIN
     Dosage: 5000 UG
  20. ALLEGRA [Concomitant]
     Active Substance: FEXOFENADINE HYDROCHLORIDE
  21. PULMICORT FLEXHALER [Concomitant]
     Active Substance: BUDESONIDE
     Dosage: 90 UG
  22. NYSTATIN AND TRIAMCINOLONE ACETONIDE [Concomitant]
     Active Substance: NYSTATIN\TRIAMCINOLONE ACETONIDE
  23. TACROLIMUS [Concomitant]
     Active Substance: TACROLIMUS
     Dosage: 1 %
  24. TYLENOL [Concomitant]
     Active Substance: ACETAMINOPHEN
  25. EXCEDRIN EXTRA STRENGTH [Concomitant]
     Active Substance: ACETAMINOPHEN\ASPIRIN\CAFFEINE

REACTIONS (4)
  - Diarrhoea [Recovering/Resolving]
  - Dysgeusia [Recovering/Resolving]
  - COVID-19 [Recovering/Resolving]
  - Disease recurrence [Recovering/Resolving]

NARRATIVE: CASE EVENT DATE: 20230309
